FAERS Safety Report 17975667 (Version 2)
Quarter: 2021Q1

REPORT INFORMATION
  Report Type: Spontaneous
  Country: US (occurrence: US)
  Receive Date: 20200702
  Receipt Date: 20210305
  Transmission Date: 20210419
  Serious: Yes (Hospitalization, Other)
  Sender: FDA-Public Use
  Company Number: US-NAPPMUNDI-USA-2020-0154768

PATIENT
  Sex: Male

DRUGS (1)
  1. OXYCONTIN [Suspect]
     Active Substance: OXYCODONE HYDROCHLORIDE
     Indication: PRODUCT USED FOR UNKNOWN INDICATION
     Dosage: UNK
     Route: 048
     Dates: start: 2018

REACTIONS (7)
  - Dependence [Not Recovered/Not Resolved]
  - Post-traumatic stress disorder [Unknown]
  - Pain [Unknown]
  - Emotional distress [Unknown]
  - Hospitalisation [Unknown]
  - Withdrawal syndrome [Unknown]
  - Suicide attempt [Unknown]
